FAERS Safety Report 16019617 (Version 3)
Quarter: 2019Q3

REPORT INFORMATION
  Report Type: Spontaneous
  Country: CA (occurrence: CA)
  Receive Date: 20190228
  Receipt Date: 20190722
  Transmission Date: 20191004
  Serious: Yes (Other)
  Sender: FDA-Public Use
  Company Number: CA-OTSUKA-2019_004972

PATIENT
  Age: 20 Year
  Sex: Male

DRUGS (2)
  1. PREGABALIN. [Concomitant]
     Active Substance: PREGABALIN
     Indication: PAIN
     Dosage: 100 MG, QD (AS NEEDED)
     Route: 065
  2. ABILIFY MAINTENA [Suspect]
     Active Substance: ARIPIPRAZOLE
     Indication: SCHIZOPHRENIA
     Dosage: 400 MG, EVERY 4 WEEKS
     Route: 065
     Dates: start: 20181218

REACTIONS (5)
  - Blister [Recovered/Resolved]
  - Intentional self-injury [Recovered/Resolved]
  - Rash [Recovered/Resolved]
  - Skin necrosis [Recovered/Resolved]
  - Thermal burn [Recovered/Resolved]

NARRATIVE: CASE EVENT DATE: 20190212
